FAERS Safety Report 6036628-5 (Version None)
Quarter: 2009Q1

REPORT INFORMATION
  Report Type: 
  Country: None (occurrence: None)
  Receive Date: 20090114
  Receipt Date: 20090104
  Transmission Date: 20090719
  Serious: Yes (Other)
  Sender: FDA-Public Use
  Company Number: GB-ROCHE-606438

PATIENT
  Sex: Female

DRUGS (5)
  1. ORLISTAT [Suspect]
     Indication: OBESITY
     Route: 048
     Dates: start: 20080627, end: 20081212
  2. AMITRIPTYLINE HCL [Concomitant]
     Route: 048
  3. NORETHINDRONE ACETATE [Concomitant]
     Indication: GASTRIC DISORDER
     Route: 048
  4. ETOPAN [Concomitant]
     Dosage: DRUG NAME: ETOPAN XL
     Route: 048
  5. NAPROXEN [Concomitant]
     Route: 048

REACTIONS (1)
  - ANAL HAEMORRHAGE [None]
